FAERS Safety Report 6063878-4 (Version None)
Quarter: 2009Q1

REPORT INFORMATION
  Report Type: 
  Country: None (occurrence: None)
  Receive Date: 20090130
  Receipt Date: 20090120
  Transmission Date: 20090719
  Serious: Yes (Hospitalization)
  Sender: FDA-Public Use
  Company Number: 1-17346321

PATIENT
  Age: 14 Year
  Sex: Female

DRUGS (8)
  1. BACTRIM [Suspect]
     Indication: LUNG INFECTION
  2. BACTRIM [Suspect]
     Indication: STAPHYLOCOCCAL INFECTION
  3. CIPROFLOXACIN [Suspect]
     Indication: LUNG INFECTION
  4. CIPROFLOXACIN [Suspect]
     Indication: STAPHYLOCOCCAL INFECTION
  5. AMIKACIN [Suspect]
     Indication: LUNG INFECTION
  6. AMIKACIN [Suspect]
     Indication: STAPHYLOCOCCAL INFECTION
  7. RIFAMPIN [Suspect]
     Indication: LUNG INFECTION
     Dosage: 300 MG TWICE DAILY, ORAL
     Route: 048
  8. RIFAMPIN [Suspect]
     Indication: STAPHYLOCOCCAL INFECTION
     Dosage: 300 MG TWICE DAILY, ORAL
     Route: 048

REACTIONS (11)
  - BLOOD BILIRUBIN INCREASED [None]
  - COOMBS DIRECT TEST POSITIVE [None]
  - DIALYSIS [None]
  - DRUG TOXICITY [None]
  - HAEMOGLOBINURIA [None]
  - HAEMOLYTIC ANAEMIA [None]
  - RED BLOOD CELL SCHISTOCYTES PRESENT [None]
  - RENAL FAILURE ACUTE [None]
  - RENAL TUBULAR NECROSIS [None]
  - RETICULOCYTOPENIA [None]
  - THROMBOCYTOPENIA [None]
